FAERS Safety Report 8936859 (Version 3)
Quarter: 2013Q1

REPORT INFORMATION
  Report Type: Spontaneous
  Country: US (occurrence: US)
  Receive Date: 20121130
  Receipt Date: 20130305
  Transmission Date: 20140127
  Serious: Yes (Other)
  Sender: FDA-Public Use
  Company Number: PHEH2012US023320

PATIENT
  Sex: Female

DRUGS (1)
  1. GILENYA [Suspect]
     Indication: MULTIPLE SCLEROSIS
     Dosage: 0.5 MG, QD
     Route: 048
     Dates: start: 20120122

REACTIONS (9)
  - Pleurisy [Recovering/Resolving]
  - Pneumonia [Recovering/Resolving]
  - Pulmonary function test abnormal [Unknown]
  - Oxygen saturation decreased [Unknown]
  - Dyspnoea [Not Recovered/Not Resolved]
  - Chest pain [Recovered/Resolved]
  - Malaise [Recovering/Resolving]
  - White blood cell count decreased [Recovering/Resolving]
  - Acne [Unknown]
